FAERS Safety Report 8578355-6 (Version None)
Quarter: 2012Q3

REPORT INFORMATION
  Report Type: 
  Country: None (occurrence: None)
  Receive Date: 20120808
  Receipt Date: 20120731
  Transmission Date: 20120928
  Serious: Yes (Other)
  Sender: FDA-Public Use
  Company Number: IN-JNJFOC-20120800662

PATIENT
  Age: 38 Year
  Sex: Male

DRUGS (8)
  1. LEVOFLOXACIN [Suspect]
     Dosage: SEVEN DAYS AGO
     Route: 065
  2. LEVOFLOXACIN [Suspect]
     Indication: PYREXIA
     Dosage: 3 MONTH AGO
     Route: 065
  3. LEVOFLOXACIN [Suspect]
     Indication: OROPHARYNGEAL PAIN
     Dosage: SEVEN DAYS AGO
     Route: 065
  4. ACETAMINOPHEN [Suspect]
     Indication: OROPHARYNGEAL PAIN
     Route: 065
  5. LEVOFLOXACIN [Suspect]
     Indication: UPPER RESPIRATORY TRACT INFECTION
     Dosage: SEVEN DAYS AGO
     Route: 065
  6. LEVOFLOXACIN [Suspect]
     Dosage: 3 MONTH AGO
     Route: 065
  7. ACETAMINOPHEN [Suspect]
     Indication: PYREXIA
     Route: 065
  8. LEVOFLOXACIN [Suspect]
     Dosage: 3 MONTH AGO
     Route: 065

REACTIONS (1)
  - DRUG ERUPTION [None]
